FAERS Safety Report 14298218 (Version 2)
Quarter: 2018Q3

REPORT INFORMATION
  Report Type: Spontaneous
  Country: US (occurrence: US)
  Receive Date: 20171218
  Receipt Date: 20180822
  Transmission Date: 20181010
  Serious: No
  Sender: FDA-Public Use
  Company Number: US-BIOCOMPATIBLES UK LTD-2017BTG01404

PATIENT
  Age: 77 Year
  Sex: Female

DRUGS (4)
  1. VARITHENA [Suspect]
     Active Substance: POLIDOCANOL
     Dosage: 12 CC, UNK
     Route: 065
     Dates: start: 20171026, end: 20171026
  2. VARITHENA [Suspect]
     Active Substance: POLIDOCANOL
     Dosage: UNK
     Route: 065
  3. VARITHENA [Suspect]
     Active Substance: POLIDOCANOL
     Dosage: UNK
     Route: 065
  4. VARITHENA [Suspect]
     Active Substance: POLIDOCANOL
     Indication: SKIN ULCER
     Dosage: 12 CC, UNK
     Route: 065
     Dates: end: 20171026

REACTIONS (5)
  - Peripheral swelling [Unknown]
  - Phlebitis [Unknown]
  - Treatment noncompliance [Unknown]
  - Vein disorder [Unknown]
  - Cellulitis [Unknown]

NARRATIVE: CASE EVENT DATE: 2017
